FAERS Safety Report 6570009-0 (Version None)
Quarter: 2010Q1

REPORT INFORMATION
  Report Type: 
  Country: None (occurrence: None)
  Receive Date: 20100204
  Receipt Date: 20100126
  Transmission Date: 20100710
  Serious: Yes (Hospitalization)
  Sender: FDA-Public Use
  Company Number: US-ROCHE-665009

PATIENT
  Sex: Male
  Weight: 79.5 kg

DRUGS (12)
  1. BEVACIZUMAB [Suspect]
     Indication: HEAD AND NECK CANCER
     Dosage: DOSE: 15 MG/KG X T DOSE = 1193 ON 09 OCTOBER 2009.
     Route: 042
     Dates: start: 20090910
  2. CETUXIMAB [Suspect]
     Indication: HEAD AND NECK CANCER
     Dosage: 250 MG/M X 2 X T DOSE = 490 MG ON 07 OCTOBER 2009.
     Route: 042
     Dates: start: 20090910
  3. ALIMTA [Suspect]
     Indication: HEAD AND NECK CANCER
     Dosage: DOSE: ALIMTA 500 MG/ M X 2 X T DOSE = 980 MG ON 07 OCTOBER 2009.
     Route: 042
     Dates: start: 20090910
  4. FENTANYL [Concomitant]
     Indication: DRUG USE FOR UNKNOWN INDICATION
  5. OXYCODONE HCL [Concomitant]
     Indication: DRUG USE FOR UNKNOWN INDICATION
  6. CLINDAGEL [Concomitant]
     Indication: DRUG USE FOR UNKNOWN INDICATION
  7. MINOCYCLINE HCL [Concomitant]
     Indication: DRUG USE FOR UNKNOWN INDICATION
  8. PRILOSEC [Concomitant]
     Indication: DRUG USE FOR UNKNOWN INDICATION
  9. FOLIC ACID [Concomitant]
     Indication: DRUG USE FOR UNKNOWN INDICATION
  10. SENNA [Concomitant]
     Indication: DRUG USE FOR UNKNOWN INDICATION
  11. COLACE [Concomitant]
  12. MIRALAX [Concomitant]
     Indication: DRUG USE FOR UNKNOWN INDICATION

REACTIONS (3)
  - MUCOSAL INFLAMMATION [None]
  - PAIN [None]
  - PYREXIA [None]
